FAERS Safety Report 10501031 (Version 1)
Quarter: 2014Q4

REPORT INFORMATION
  Report Type: Spontaneous
  Country: US (occurrence: None)
  Receive Date: 20141006
  Receipt Date: 20141006
  Transmission Date: 20150528
  Serious: Yes (Hospitalization)
  Sender: FDA-Public Use
  Company Number: None

PATIENT
  Age: 77 Year
  Weight: 91.63 kg

DRUGS (2)
  1. OXALIPLATIN. [Suspect]
     Active Substance: OXALIPLATIN
     Dosage: 85MG.M2 EVERY 2 WEEKS, 8/12, 8/25/9/8, 9/22
  2. AVASTIN [Suspect]
     Active Substance: BEVACIZUMAB
     Indication: OESOPHAGEAL CARCINOMA
     Dosage: 5MG/KG EVERY 2 WEEKS X 4?THERAPY DATES: 8/12, 8/25, 9/8, 9/22?

REACTIONS (2)
  - Pyrexia [None]
  - Laboratory test abnormal [None]

NARRATIVE: CASE EVENT DATE: 20141002
